FAERS Safety Report 6349719-6 (Version None)
Quarter: 2009Q3

REPORT INFORMATION
  Report Type: 
  Country: None (occurrence: None)
  Receive Date: 20090911
  Receipt Date: 20090901
  Transmission Date: 20100115
  Serious: Yes (Other)
  Sender: FDA-Public Use
  Company Number: US-WATSON-2009-06692

PATIENT
  Sex: Male

DRUGS (3)
  1. DIAZEPAM [Suspect]
     Indication: GRAND MAL CONVULSION
     Dosage: 2 TABLETS, BID
     Route: 048
     Dates: start: 20090812, end: 20090816
  2. DIAZEPAM [Suspect]
     Indication: PANIC DISORDER
     Dosage: 5 MG, BID
     Route: 048
     Dates: start: 20090812
  3. DIAZEPAM [Suspect]
     Indication: ANXIETY

REACTIONS (2)
  - DRUG INEFFECTIVE [None]
  - GRAND MAL CONVULSION [None]
